FAERS Safety Report 19155703 (Version 5)
Quarter: 2023Q4

REPORT INFORMATION
  Report Type: Report from Study
  Country: AT (occurrence: AT)
  Receive Date: 20210420
  Receipt Date: 20231017
  Transmission Date: 20240109
  Serious: Yes (Other)
  Sender: FDA-Public Use
  Company Number: AT-CELLTRION INC.-2021AT005048

PATIENT

DRUGS (40)
  1. HERCEPTIN [Suspect]
     Active Substance: TRASTUZUMAB
     Indication: HER2 positive breast cancer
     Dosage: 372 MG EVERY 3 WEEKS
     Route: 042
     Dates: start: 20180626, end: 20181010
  2. HERCEPTIN [Suspect]
     Active Substance: TRASTUZUMAB
     Dosage: 600 MG EVERY 3 WEEKS (MOST RECENT DOSE PRIOR TO POLYNEUROPATHY IN THE FINGERTIPS (FIRST EPISODE): 15
     Route: 042
     Dates: start: 20180328
  3. HERCEPTIN [Suspect]
     Active Substance: TRASTUZUMAB
     Dosage: 408 MG EVERY 3 WEEKS
     Route: 042
     Dates: start: 20180423, end: 20180423
  4. HERCEPTIN [Suspect]
     Active Substance: TRASTUZUMAB
     Dosage: 378 MG EVERY 3 WEEKS
     Route: 042
     Dates: start: 20181102, end: 20181102
  5. HERCEPTIN [Suspect]
     Active Substance: TRASTUZUMAB
     Dosage: 384 MG EVERY 3 WEEKS
     Route: 042
     Dates: start: 20180515, end: 20180605
  6. HERCEPTIN [Suspect]
     Active Substance: TRASTUZUMAB
     Dosage: 378 MG EVERY 3 WEEKS
     Route: 042
     Dates: start: 20181123, end: 20181123
  7. TRASTUZUMAB [Suspect]
     Active Substance: TRASTUZUMAB
     Indication: Breast cancer metastatic
     Dosage: 378 MG, EVERY 1 WEEK
     Route: 042
     Dates: start: 20181123, end: 20181123
  8. TRASTUZUMAB [Suspect]
     Active Substance: TRASTUZUMAB
     Dosage: 600 MG EVERY 3 WEEKS MOST RECENT DOSE PRIOR TO POLYNEUROPATHY IN THE FINGERTIPS (FIRST EPISODE): 15/
     Route: 042
     Dates: start: 20180328
  9. TRASTUZUMAB [Suspect]
     Active Substance: TRASTUZUMAB
     Dosage: 372 MG EVERY 3 WEEKS
     Route: 042
     Dates: start: 20180626, end: 20181010
  10. TRASTUZUMAB [Suspect]
     Active Substance: TRASTUZUMAB
     Dosage: 384 MG EVERY 3 WEEKS
     Route: 042
     Dates: start: 20180515, end: 20180605
  11. TRASTUZUMAB [Suspect]
     Active Substance: TRASTUZUMAB
     Dosage: 408 MG EVERY 3 WEEKS
     Route: 042
     Dates: start: 20180423, end: 20180423
  12. TRASTUZUMAB [Suspect]
     Active Substance: TRASTUZUMAB
     Dosage: 378 MG EVERY 3 WEEKS
     Route: 042
     Dates: start: 20181102, end: 20181102
  13. PACLITAXEL [Suspect]
     Active Substance: PACLITAXEL
     Indication: Breast cancer metastatic
     Dosage: RECEIVED DOSE ON 08/MAY/2018 AND MOST RECENT DOSE PRIOR TO POLYNEUROPATHY IN THE FINGERTIPS ON 22/MA
     Route: 042
     Dates: start: 20180416
  14. PACLITAXEL [Suspect]
     Active Substance: PACLITAXEL
     Dosage: MOST RECERNT DOSE PRIOR TO EVENT: 09/APR/2018
     Route: 042
     Dates: start: 20180328
  15. PERTUZUMAB [Suspect]
     Active Substance: PERTUZUMAB
     Indication: Breast cancer metastatic
     Dosage: 840 MG EVERY 3 WEEKS ,MOST RECENT DOSE PRIOR TO THE EVENTS: 23/APR/2018 MOST RECENT DOSE PRIOR TO TH
     Route: 042
     Dates: start: 20180328
  16. PERTUZUMAB [Suspect]
     Active Substance: PERTUZUMAB
     Dosage: 420 MG EVERY 3 WEEKS
     Route: 042
     Dates: start: 20181214, end: 20190109
  17. PERTUZUMAB [Suspect]
     Active Substance: PERTUZUMAB
     Dosage: 420 MG EVERY 3 WEEKS
     Route: 042
     Dates: start: 20180423, end: 20181123
  18. PACLITAXEL [Suspect]
     Active Substance: PACLITAXEL
     Indication: Breast cancer metastatic
     Dosage: 177.17 MG, EVERY 1 WEEKS
     Route: 042
     Dates: start: 20180416, end: 20180508
  19. PACLITAXEL [Suspect]
     Active Substance: PACLITAXEL
     Dosage: 177.17 MG, EVERY 1 WEEKS
     Route: 042
     Dates: start: 20180612, end: 20180619
  20. PACLITAXEL [Suspect]
     Active Substance: PACLITAXEL
     Dosage: 171.51 MG, EVERY 1 WEEK
     Route: 042
     Dates: start: 20190109, end: 20190109
  21. PACLITAXEL [Suspect]
     Active Substance: PACLITAXEL
     Dosage: 171.51 MG, EVERY 1 WEEK
     Route: 042
     Dates: start: 20181102, end: 20181123
  22. PACLITAXEL [Suspect]
     Active Substance: PACLITAXEL
     Dosage: 170.35 MG EVERY 1 WEEK
     Route: 042
     Dates: start: 20180626, end: 20180718
  23. PACLITAXEL [Suspect]
     Active Substance: PACLITAXEL
     Dosage: 172.67 MG, EVERY 1 WEEK
     Route: 042
     Dates: start: 20180515, end: 20180515
  24. PACLITAXEL [Suspect]
     Active Substance: PACLITAXEL
     Dosage: 172.67 MG, EVERY 1 WEEK
     Route: 042
     Dates: start: 20190102, end: 20190102
  25. PACLITAXEL [Suspect]
     Active Substance: PACLITAXEL
     Dosage: 171.51 MG, EVERY 1 WEEK
     Route: 042
     Dates: start: 20181207, end: 20181221
  26. PACLITAXEL [Suspect]
     Active Substance: PACLITAXEL
     Dosage: 172.67 MG, EVERY 1 WEEK
     Route: 042
     Dates: start: 20180605, end: 20180605
  27. PACLITAXEL [Suspect]
     Active Substance: PACLITAXEL
     Dosage: 172.67 MG, EVERY 1 WEEK (MOST RECENT DOSE PRIOR TO AE 16/JAN/2019)
     Route: 042
     Dates: start: 20190116
  28. PACLITAXEL [Suspect]
     Active Substance: PACLITAXEL
     Dosage: 177.17 MG, EVERY 1 WEEK
     Route: 042
     Dates: start: 20180522, end: 20180529
  29. DEXAMETHASONE [Concomitant]
     Active Substance: DEXAMETHASONE
     Dosage: UNK
     Dates: start: 20180423
  30. DEXAMETHASONE [Concomitant]
     Active Substance: DEXAMETHASONE
     Dosage: UNK
     Dates: start: 20180416, end: 20190109
  31. DEXAMETHASONE [Concomitant]
     Active Substance: DEXAMETHASONE
     Dosage: UNK
     Dates: start: 20190131, end: 20190517
  32. KYTRIL [Concomitant]
     Active Substance: GRANISETRON HYDROCHLORIDE
     Dosage: UNK
     Dates: start: 20181102, end: 20190109
  33. KYTRIL [Concomitant]
     Active Substance: GRANISETRON HYDROCHLORIDE
     Dosage: UNK
     Dates: start: 20190116, end: 20190116
  34. KYTRIL [Concomitant]
     Active Substance: GRANISETRON HYDROCHLORIDE
     Dosage: UNK
     Dates: start: 20190131, end: 20190517
  35. RANITIDINE HYDROCHLORIDE [Concomitant]
     Active Substance: RANITIDINE HYDROCHLORIDE
     Dosage: UNK
     Dates: start: 20181102, end: 20190109
  36. ASCORBIC ACID\CALCIUM PHOSPHATE\CHOLECALCIFEROL\CITRIC ACID MONOHYDRAT [Concomitant]
     Active Substance: ASCORBIC ACID\CALCIUM PHOSPHATE\CHOLECALCIFEROL\CITRIC ACID MONOHYDRATE
     Dosage: UNK
     Dates: start: 20180612, end: 20190425
  37. DEXABENE [Concomitant]
     Dosage: UNK
     Dates: start: 20181102, end: 20190109
  38. DEXABENE [Concomitant]
     Dosage: UNK
     Dates: start: 20190116, end: 20190116
  39. FENAKUT [Concomitant]
     Dosage: UNK
     Dates: start: 20181102, end: 20190109
  40. DIMETHINDENE [Concomitant]
     Active Substance: DIMETHINDENE

REACTIONS (5)
  - Polyneuropathy [Recovered/Resolved]
  - Polyneuropathy [Recovered/Resolved]
  - Onycholysis [Recovered/Resolved]
  - Conjunctivitis [Recovered/Resolved]
  - Nasopharyngitis [Recovered/Resolved]

NARRATIVE: CASE EVENT DATE: 20180522
